FAERS Safety Report 9706189 (Version 1)
Quarter: 2013Q4

REPORT INFORMATION
  Report Type: Spontaneous
  Country: GB (occurrence: GB)
  Receive Date: 20131124
  Receipt Date: 20131124
  Transmission Date: 20140711
  Serious: Yes (Death, Other)
  Sender: FDA-Public Use
  Company Number: GB-ROCHE-1308023

PATIENT
  Age: 70 Year
  Sex: Male

DRUGS (5)
  1. MABTHERA [Suspect]
     Indication: PRODUCT USED FOR UNKNOWN INDICATION
     Route: 065
  2. PREDNISONE [Concomitant]
     Route: 065
  3. CYCLOPHOSPHAMIDE [Concomitant]
     Route: 065
  4. VINCRISTINE [Concomitant]
     Route: 065
  5. FLUDARABINE [Concomitant]

REACTIONS (2)
  - Death [Fatal]
  - Bone marrow disorder [Unknown]
